FAERS Safety Report 9713869 (Version 1)
Quarter: 2013Q4

REPORT INFORMATION
  Report Type: Spontaneous
  Country: US (occurrence: US)
  Receive Date: 20131126
  Receipt Date: 20131126
  Transmission Date: 20140711
  Serious: Yes (Hospitalization)
  Sender: FDA-Public Use
  Company Number: US-GLAXOSMITHKLINE-A1051312A

PATIENT
  Age: 58 Year
  Sex: Female

DRUGS (3)
  1. ADVAIR [Suspect]
     Indication: CHRONIC OBSTRUCTIVE PULMONARY DISEASE
  2. OXYGEN [Concomitant]
  3. BLOOD THINNER [Concomitant]

REACTIONS (2)
  - Respiratory failure [Unknown]
  - Oxygen supplementation [Unknown]
